FAERS Safety Report 19103678 (Version 1)
Quarter: 2021Q2

REPORT INFORMATION
  Report Type: Spontaneous
  Country: US (occurrence: US)
  Receive Date: 20210407
  Receipt Date: 20210407
  Transmission Date: 20210717
  Serious: No
  Sender: FDA-Public Use
  Company Number: US-GLAXOSMITHKLINE-USCH2021017392

PATIENT
  Age: 53 Year
  Sex: Female

DRUGS (1)
  1. ADVIL [Suspect]
     Active Substance: IBUPROFEN
     Indication: BACK PAIN
     Dates: start: 20210330, end: 20210331

REACTIONS (7)
  - Tongue discomfort [Recovered/Resolved]
  - Burning mouth syndrome [Recovered/Resolved]
  - Hypoaesthesia oral [Recovered/Resolved]
  - Dyspepsia [Recovered/Resolved]
  - Chest pain [Recovered/Resolved]
  - Swollen tongue [Recovered/Resolved]
  - Tooth discolouration [Recovered/Resolved]

NARRATIVE: CASE EVENT DATE: 20210331
